FAERS Safety Report 6690425-6 (Version None)
Quarter: 2010Q2

REPORT INFORMATION
  Report Type: 
  Country: None (occurrence: None)
  Receive Date: 20100421
  Receipt Date: 20091201
  Transmission Date: 20101027
  Serious: No
  Sender: FDA-Public Use
  Company Number: US-ASTRAZENECA-2009SE29751

PATIENT
  Sex: Male
  Weight: 81.6 kg

DRUGS (5)
  1. CASODEX [Suspect]
     Route: 048
  2. SINASTERIDE [Concomitant]
  3. PREVACID [Concomitant]
  4. VITAMIN E [Concomitant]
  5. VITAMINS [Concomitant]

REACTIONS (1)
  - PROSTATIC SPECIFIC ANTIGEN INCREASED [None]
